FAERS Safety Report 25890492 (Version 1)
Quarter: 2025Q4

REPORT INFORMATION
  Report Type: Spontaneous
  Country: US (occurrence: US)
  Receive Date: 20251007
  Receipt Date: 20251007
  Transmission Date: 20260117
  Serious: No
  Sender: BAYER HEALTHCARE PHARMACEUTICALS INC.
  Company Number: US-BAYER-2025A131853

PATIENT
  Sex: Female
  Weight: 52.608 kg

DRUGS (3)
  1. ESTRADIOL [Suspect]
     Active Substance: ESTRADIOL
     Indication: Hormone replacement therapy
     Dosage: 1 DF, OW
     Route: 062
  2. PAXLOVID [Suspect]
     Active Substance: NIRMATRELVIR\RITONAVIR
     Dosage: UNK
     Route: 048
     Dates: start: 20250905, end: 20250909
  3. PROGESTERONE [Concomitant]
     Active Substance: PROGESTERONE
     Indication: Hormone replacement therapy
     Dosage: 100 MG, HS
     Route: 048

REACTIONS (7)
  - COVID-19 [Recovering/Resolving]
  - Oropharyngeal pain [Recovering/Resolving]
  - Pharyngeal swelling [None]
  - Headache [Not Recovered/Not Resolved]
  - Pain [None]
  - Pyrexia [Recovered/Resolved]
  - Cough [None]

NARRATIVE: CASE EVENT DATE: 20250901
